FAERS Safety Report 18245021 (Version 1)
Quarter: 2020Q3

REPORT INFORMATION
  Report Type: Spontaneous
  Country: US (occurrence: US)
  Receive Date: 20200908
  Receipt Date: 20200908
  Transmission Date: 20201103
  Serious: Yes (Other)
  Sender: FDA-Public Use
  Company Number: US-CELGENEUS-USA-20200900307

PATIENT
  Age: 65 Year
  Sex: Male
  Weight: 57.66 kg

DRUGS (1)
  1. REVLIMID [Suspect]
     Active Substance: LENALIDOMIDE
     Indication: PLASMA CELL MYELOMA
     Dosage: 15 MILLICURIES
     Route: 048
     Dates: start: 20200205

REACTIONS (5)
  - Fatigue [Not Recovered/Not Resolved]
  - Syncope [Not Recovered/Not Resolved]
  - Fall [Not Recovered/Not Resolved]
  - Feeling cold [Not Recovered/Not Resolved]
  - Depressed mood [Not Recovered/Not Resolved]

NARRATIVE: CASE EVENT DATE: 2020
